FAERS Safety Report 7872607-0 (Version None)
Quarter: 2011Q4

REPORT INFORMATION
  Report Type: 
  Country: None (occurrence: None)
  Receive Date: 20111030
  Receipt Date: 20110429
  Transmission Date: 20120403
  Serious: No
  Sender: FDA-Public Use
  Company Number: US-AMGEN-USASP2011022492

PATIENT
  Age: 63 Year
  Sex: Female

DRUGS (1)
  1. ENBREL [Suspect]
     Indication: RHEUMATOID ARTHRITIS
     Dosage: 25 MG, QWK
     Dates: start: 20030225

REACTIONS (5)
  - POST PROCEDURAL DISCOMFORT [None]
  - MAMMOGRAM ABNORMAL [None]
  - NODULE [None]
  - POST PROCEDURAL COMPLICATION [None]
  - BREAST CYST [None]
